FAERS Safety Report 9331527 (Version 2)
Quarter: 2013Q2

REPORT INFORMATION
  Report Type: Spontaneous
  Country: US (occurrence: US)
  Receive Date: 20130605
  Receipt Date: 20130626
  Transmission Date: 20140414
  Serious: No
  Sender: FDA-Public Use
  Company Number: US-PFIZER INC-2013168567

PATIENT
  Age: 57 Year
  Sex: Female

DRUGS (2)
  1. XALKORI [Suspect]
     Indication: LUNG CANCER METASTATIC
     Dosage: 250 MG, 2X/DAY (1 CAPSULE, AT 8AM AND 8PM)
     Route: 048
  2. TUMS [Suspect]
     Dosage: AT 5AM, 1/2 TABLET

REACTIONS (2)
  - Dyspepsia [Unknown]
  - Diarrhoea [Unknown]
